FAERS Safety Report 10573869 (Version 2)
Quarter: 2014Q4

REPORT INFORMATION
  Report Type: Report from Study
  Country: US (occurrence: US)
  Receive Date: 20141110
  Receipt Date: 20141110
  Transmission Date: 20150529
  Serious: Yes (Hospitalization)
  Sender: FDA-Public Use
  Company Number: US-MYLANLABS-2014M1007981

PATIENT
  Age: 62 Year
  Sex: Female
  Weight: 54.1 kg

DRUGS (10)
  1. FLOVENT [Concomitant]
     Active Substance: FLUTICASONE PROPIONATE
     Indication: CHRONIC OBSTRUCTIVE PULMONARY DISEASE
     Dosage: 250 ?G, UNK
     Route: 055
     Dates: start: 20140423, end: 20141003
  2. FORMOTEROL FUMARATE SOLUTION (FOR NEBULISATION) [Suspect]
     Active Substance: FORMOTEROL FUMARATE
     Indication: CHRONIC OBSTRUCTIVE PULMONARY DISEASE
     Dosage: 20 ?G, BID
     Route: 055
     Dates: start: 20140430, end: 20141001
  3. FLEXERIL [Concomitant]
     Active Substance: CYCLOBENZAPRINE HYDROCHLORIDE
     Dosage: 5 MG, PRN
     Route: 048
     Dates: start: 2006, end: 20140731
  4. ESCITALOPRAM [Concomitant]
     Active Substance: ESCITALOPRAM OXALATE
     Dosage: 20 MG, UNK
     Route: 048
     Dates: start: 2009
  5. DIAZEPAM. [Concomitant]
     Active Substance: DIAZEPAM
     Dosage: UNK
     Route: 048
     Dates: start: 201403
  6. OXYGEN. [Concomitant]
     Active Substance: OXYGEN
     Dosage: UNK, PRN
     Route: 055
     Dates: start: 201403
  7. LOVASTATIN. [Concomitant]
     Active Substance: LOVASTATIN
     Dosage: 20 MG, UNK
     Route: 048
     Dates: start: 2006
  8. OXYCODONE [Concomitant]
     Active Substance: OXYCODONE
     Dosage: UNK
     Route: 048
     Dates: start: 201404
  9. FLEXERIL [Concomitant]
     Active Substance: CYCLOBENZAPRINE HYDROCHLORIDE
     Dosage: 10 UNK, UNK
     Route: 048
     Dates: start: 20140731
  10. ALBUTEROL                          /00139501/ [Concomitant]
     Active Substance: ALBUTEROL
     Indication: CHRONIC OBSTRUCTIVE PULMONARY DISEASE
     Dosage: 90 ?G, UNK
     Route: 055
     Dates: start: 20140423

REACTIONS (2)
  - Chronic obstructive pulmonary disease [Recovered/Resolved]
  - Muscle spasms [Recovered/Resolved]

NARRATIVE: CASE EVENT DATE: 20141002
